FAERS Safety Report 10164529 (Version 1)
Quarter: 2014Q2

REPORT INFORMATION
  Report Type: Spontaneous
  Country: US (occurrence: US)
  Receive Date: 20140510
  Receipt Date: 20140510
  Transmission Date: 20141212
  Serious: No
  Sender: FDA-Public Use
  Company Number: US-BRISTOL-MYERS SQUIBB COMPANY-20094165

PATIENT
  Age: 66 Year
  Sex: Male
  Weight: 122.45 kg

DRUGS (1)
  1. BYDUREON [Suspect]
     Indication: TYPE 2 DIABETES MELLITUS
     Route: 058

REACTIONS (6)
  - Headache [Unknown]
  - Fatigue [Unknown]
  - Hypersomnia [Unknown]
  - Blood glucose increased [Unknown]
  - Incorrect product storage [Unknown]
  - Pruritus generalised [Unknown]
